FAERS Safety Report 6295792-3 (Version None)
Quarter: 2009Q3

REPORT INFORMATION
  Report Type: 
  Country: None (occurrence: None)
  Receive Date: 20090804
  Receipt Date: 20090723
  Transmission Date: 20100115
  Serious: Yes (Hospitalization)
  Sender: FDA-Public Use
  Company Number: ES-PFIZER INC-2009242417

PATIENT
  Age: 81 Year

DRUGS (10)
  1. BLINDED *NO SUBJECT DRUG [Suspect]
     Indication: PROSTATE CANCER
     Dosage: 37.5 MG, 1X/DAY
     Route: 048
     Dates: start: 20090316
  2. BLINDED *PLACEBO [Suspect]
     Indication: PROSTATE CANCER
     Dosage: 37.5 MG, 1X/DAY
     Route: 048
     Dates: start: 20090316
  3. BLINDED SUNITINIB MALATE [Suspect]
     Indication: PROSTATE CANCER
     Dosage: 37.5 MG, 1X/DAY
     Route: 048
     Dates: start: 20090316
  4. PREDNISONE [Suspect]
     Indication: PROSTATE CANCER
     Dosage: 5 MG, 2X/DAY
     Route: 048
     Dates: start: 20090316
  5. PREGABALIN [Concomitant]
     Indication: PERIPHERAL SENSORY NEUROPATHY
     Dosage: UNK
     Route: 048
     Dates: start: 20080702
  6. HIDROXIL B12 B6 B1 [Concomitant]
     Indication: PERIPHERAL SENSORY NEUROPATHY
     Dosage: UNK
     Dates: start: 20080702
  7. PRAVASTATIN [Concomitant]
     Indication: HYPERLIPIDAEMIA
     Dosage: UNK
     Dates: start: 20090224
  8. TRIPTORELIN [Concomitant]
     Indication: PROSTATE CANCER
     Dosage: UNK
     Dates: start: 20080702
  9. OMEPRAZOLE [Concomitant]
     Indication: PROPHYLAXIS
     Dosage: UNK
     Dates: start: 20090224
  10. METAMIZOLE [Concomitant]
     Indication: PAIN
     Dosage: UNK
     Dates: start: 20090706

REACTIONS (1)
  - SUBCUTANEOUS ABSCESS [None]
